FAERS Safety Report 8236021-0 (Version None)
Quarter: 2012Q1

REPORT INFORMATION
  Report Type: 
  Country: None (occurrence: None)
  Receive Date: 20120326
  Receipt Date: 20120316
  Transmission Date: 20120608
  Serious: Yes (Hospitalization, Other)
  Sender: FDA-Public Use
  Company Number: US-ASTRAZENECA-2010SE24775

PATIENT
  Age: 91 Year
  Sex: Female

DRUGS (1)
  1. ATACAND [Suspect]
     Route: 048
     Dates: start: 20040101

REACTIONS (3)
  - FALL [None]
  - GASTROINTESTINAL VIRAL INFECTION [None]
  - HIP FRACTURE [None]
